FAERS Safety Report 4944961-0 (Version None)
Quarter: 2006Q1

REPORT INFORMATION
  Report Type: 
  Country: None (occurrence: None)
  Receive Date: 20060117
  Receipt Date: 20050608
  Transmission Date: 20060701
  Serious: Yes (Other)
  Sender: FDA-Public Use
  Company Number: A03200501724

PATIENT
  Sex: Female

DRUGS (1)
  1. PLAVIX [Suspect]
     Dosage: ORAL
     Route: 048
     Dates: start: 20040101

REACTIONS (3)
  - DRUG INEFFECTIVE [None]
  - HAEMORRHAGE [None]
  - MYOCARDIAL INFARCTION [None]
